FAERS Safety Report 25222818 (Version 1)
Quarter: 2025Q2

REPORT INFORMATION
  Report Type: Spontaneous
  Country: JP (occurrence: JP)
  Receive Date: 20250422
  Receipt Date: 20250422
  Transmission Date: 20250716
  Serious: Yes (Hospitalization, Other)
  Sender: GLAXOSMITHKLINE
  Company Number: JP-GSKJP-JP2025JPN045772AA

PATIENT

DRUGS (1)
  1. NUCALA [Suspect]
     Active Substance: MEPOLIZUMAB

REACTIONS (5)
  - Metabolic encephalopathy [Unknown]
  - Altered state of consciousness [Recovering/Resolving]
  - Movement disorder [Unknown]
  - Muscle rigidity [Unknown]
  - Parkinsonism [Recovering/Resolving]
